FAERS Safety Report 7749963-7 (Version None)
Quarter: 2011Q3

REPORT INFORMATION
  Report Type: 
  Country: None (occurrence: None)
  Receive Date: 20110912
  Receipt Date: 20110902
  Transmission Date: 20111222
  Serious: Yes (Other)
  Sender: FDA-Public Use
  Company Number: 2011SP037766

PATIENT
  Age: 37 Year
  Sex: Female

DRUGS (2)
  1. SAPHRIS [Suspect]
     Indication: SCHIZOPHRENIA
     Dosage: 5 MG;QD;SL
     Route: 060
     Dates: start: 20110809
  2. TRAZODONE HYDROCHLORIDE [Concomitant]

REACTIONS (7)
  - LIBIDO DECREASED [None]
  - SELF ESTEEM DECREASED [None]
  - AGGRESSION [None]
  - RASH [None]
  - NEGATIVE THOUGHTS [None]
  - WEIGHT INCREASED [None]
  - PALLOR [None]
